FAERS Safety Report 9339018 (Version 1)
Quarter: 2013Q2

REPORT INFORMATION
  Report Type: Spontaneous
  Country: US (occurrence: US)
  Receive Date: 20130610
  Receipt Date: 20130610
  Transmission Date: 20140414
  Serious: No
  Sender: FDA-Public Use
  Company Number: US-GLAXOSMITHKLINE-A0987559A

PATIENT
  Age: 45 Year
  Sex: Female

DRUGS (2)
  1. ALTABAX [Suspect]
     Indication: STAPHYLOCOCCAL INFECTION
     Dosage: 1APP THREE TIMES PER DAY
     Route: 061
     Dates: start: 20120727
  2. ARMOUR THYROID [Concomitant]

REACTIONS (5)
  - Ocular hyperaemia [Recovering/Resolving]
  - Application site erythema [Unknown]
  - Headache [Unknown]
  - Eye discharge [Unknown]
  - Application site pruritus [Unknown]
